FAERS Safety Report 10167638 (Version 3)
Quarter: 2014Q2

REPORT INFORMATION
  Report Type: Report from Study
  Country: CA (occurrence: CA)
  Receive Date: 20140512
  Receipt Date: 20140523
  Transmission Date: 20141212
  Serious: Yes (Hospitalization)
  Sender: FDA-Public Use
  Company Number: CA-BRISTOL-MYERS SQUIBB COMPANY-20652426

PATIENT
  Age: 57 Year
  Sex: Female

DRUGS (5)
  1. ORENCIA [Suspect]
     Indication: RHEUMATOID ARTHRITIS
     Dosage: 1DF = 750 UNITS NOS?EXP DATE : MAR2016
     Dates: start: 20121004
  2. NEXIUM [Concomitant]
  3. CANDESARTAN [Concomitant]
     Dosage: CANDESTAN
  4. PREDNISONE [Concomitant]
  5. RISEDRONATE SODIUM [Concomitant]

REACTIONS (7)
  - Labyrinthitis [Unknown]
  - Clostridium test positive [Unknown]
  - Balance disorder [Unknown]
  - Nausea [Unknown]
  - Heart rate increased [Unknown]
  - Restless legs syndrome [Unknown]
  - Depressed mood [Unknown]
